FAERS Safety Report 10166531 (Version 1)
Quarter: 2014Q2

REPORT INFORMATION
  Report Type: Report from Study
  Country: ES (occurrence: None)
  Receive Date: 20140508
  Receipt Date: 20140508
  Transmission Date: 20141212
  Serious: Yes (Hospitalization)
  Sender: FDA-Public Use
  Company Number: 2014SGN00170

PATIENT
  Age: 72 Year
  Sex: Female
  Weight: 52.2 kg

DRUGS (10)
  1. BRENTUXIMAB VEDOTIN (BRENTUXIMAB VEDOTIN) INJECTION [Suspect]
     Indication: MYCOSIS FUNGOIDES
     Route: 042
     Dates: start: 20140127, end: 20140218
  2. HYDRALAZINE (HYDRALAZINE) [Concomitant]
  3. APREPITANT (APREPITANT) [Concomitant]
  4. SULFAMETHOXAXOLE AND TRIMETHOPRIM (SULFAMETHOXAZOLE, TRIMETHOPRIM) [Concomitant]
  5. DOXEPIN (DOXEPIN HYDROCHLORIDE) [Concomitant]
  6. ACETAMINOPHEN (ACETAMINOPHEN) [Concomitant]
  7. LORAZEPAM (LORAZEPAM) [Concomitant]
  8. ATORVASTATIN (ATORVASTATIN CALCIUM) [Concomitant]
  9. HYDROCHLOROTHIAZIDE (HYDROCHLOROTHIAZIDE) [Concomitant]
  10. OMEPRAZOLE (OMEPRAZOLE) [Concomitant]

REACTIONS (6)
  - Eczema [None]
  - Pain in extremity [None]
  - Peripheral swelling [None]
  - Rash pustular [None]
  - Staphylococcus test positive [None]
  - Sleep disorder [None]
